FAERS Safety Report 6496008-5 (Version None)
Quarter: 2009Q4

REPORT INFORMATION
  Report Type: 
  Country: None (occurrence: None)
  Receive Date: 20091214
  Receipt Date: 20090915
  Transmission Date: 20100525
  Serious: No
  Sender: FDA-Public Use
  Company Number: US-BRISTOL-MYERS SQUIBB COMPANY-14779581

PATIENT
  Age: 57 Year
  Sex: Female
  Weight: 67 kg

DRUGS (12)
  1. ABILIFY [Suspect]
     Indication: DEPRESSION
  2. PLAVIX [Concomitant]
  3. ASPIRIN [Concomitant]
  4. LAMICTAL [Concomitant]
  5. CELEBREX [Concomitant]
  6. LEXAPRO [Concomitant]
  7. CALCIUM [Concomitant]
  8. MAGNESIUM [Concomitant]
  9. VITAMIN D [Concomitant]
  10. ZOCOR [Concomitant]
  11. HUMALOG [Concomitant]
  12. LANTUS [Concomitant]

REACTIONS (1)
  - ORTHOSTATIC HYPOTENSION [None]
